FAERS Safety Report 13883938 (Version 1)
Quarter: 2017Q3

REPORT INFORMATION
  Report Type: Spontaneous
  Country: US (occurrence: US)
  Receive Date: 20170819
  Receipt Date: 20170819
  Transmission Date: 20171127
  Serious: No
  Sender: FDA-Public Use
  Company Number: None

PATIENT
  Age: 50 Year
  Sex: Female
  Weight: 67.5 kg

DRUGS (1)
  1. ZOLPIDEM [Suspect]
     Active Substance: ZOLPIDEM\ZOLPIDEM TARTRATE
     Indication: INSOMNIA
     Dosage: ?          QUANTITY:30 TABLET(S) AT BEDTIME ORAL?
     Route: 048
     Dates: end: 20170817

REACTIONS (3)
  - Anxiety [None]
  - Sleep disorder [None]
  - Agitation [None]

NARRATIVE: CASE EVENT DATE: 20170817
